FAERS Safety Report 6411172-1 (Version None)
Quarter: 2009Q4

REPORT INFORMATION
  Report Type: 
  Country: None (occurrence: None)
  Receive Date: 20091022
  Receipt Date: 20091013
  Transmission Date: 20100525
  Serious: Yes (Other)
  Sender: FDA-Public Use
  Company Number: JP-PFIZER INC-2009271457

PATIENT
  Age: 47 Year

DRUGS (4)
  1. VFEND [Suspect]
     Indication: ASPERGILLOSIS
     Dosage: UNK
     Route: 048
     Dates: start: 20090803, end: 20090803
  2. VFEND [Suspect]
     Dosage: UNK
     Route: 048
     Dates: start: 20090804, end: 20090828
  3. VFEND [Suspect]
     Dosage: UNK
     Route: 048
     Dates: start: 20090829, end: 20090910
  4. MICAFUNGIN SODIUM [Concomitant]
     Route: 042

REACTIONS (1)
  - AUTOIMMUNE HEPATITIS [None]
